FAERS Safety Report 8617439-0 (Version None)
Quarter: 2012Q3

REPORT INFORMATION
  Report Type: 
  Country: None (occurrence: None)
  Receive Date: 20120824
  Receipt Date: 20120815
  Transmission Date: 20120928
  Serious: Yes (Hospitalization)
  Sender: FDA-Public Use
  Company Number: US-009507513-1207USA012304

PATIENT

DRUGS (7)
  1. PEGASYS [Suspect]
  2. BENAZEPRIL HYDROCHLORIDE [Concomitant]
     Route: 048
  3. COPEGUS [Suspect]
     Route: 048
  4. VICTRELIS [Suspect]
  5. ALLOPURINOL [Concomitant]
     Route: 048
  6. ESTROGENS (UNSPECIFIED) [Concomitant]
     Route: 048
  7. ATENOLOL [Suspect]
     Route: 048

REACTIONS (5)
  - URINARY TRACT INFECTION [None]
  - ASTHENIA [None]
  - TRANSFUSION [None]
  - ANAEMIA [None]
  - PAIN [None]
